FAERS Safety Report 4625512-7 (Version None)
Quarter: 2005Q2

REPORT INFORMATION
  Report Type: 
  Country: None (occurrence: None)
  Receive Date: 20050401
  Receipt Date: 20050301
  Transmission Date: 20051028
  Serious: Yes (Hospitalization)
  Sender: FDA-Public Use
  Company Number: FR-ABBOTT-05P-056-0292604-00

PATIENT
  Sex: Female

DRUGS (8)
  1. DEPAKENE [Suspect]
     Indication: EPILEPSY
     Route: 048
     Dates: start: 20050214, end: 20050216
  2. DEPAKENE [Interacting]
     Dosage: 250 MG + 500 MG
     Route: 048
     Dates: start: 20050212, end: 20050213
  3. DEPAKENE [Interacting]
     Route: 048
     Dates: start: 20050210, end: 20050211
  4. DEPAKENE [Interacting]
     Route: 048
     Dates: start: 20050208, end: 20050209
  5. DEPAKENE [Interacting]
  6. TOPIRAMATE [Interacting]
     Indication: EPILEPSY
     Route: 048
     Dates: start: 20030101
  7. CLOBAZAM [Concomitant]
     Indication: EPILEPSY
     Route: 048
     Dates: start: 20000101
  8. OXCARBAZEPINE [Concomitant]
     Indication: DRUG USE FOR UNKNOWN INDICATION

REACTIONS (5)
  - DIET REFUSAL [None]
  - DRUG INTERACTION [None]
  - DRUG LEVEL INCREASED [None]
  - DYSARTHRIA [None]
  - METABOLIC ENCEPHALOPATHY [None]
